FAERS Safety Report 14314888 (Version 2)
Quarter: 2018Q1

REPORT INFORMATION
  Report Type: Report from Study
  Country: AU (occurrence: AU)
  Receive Date: 20171221
  Receipt Date: 20180109
  Transmission Date: 20180509
  Serious: Yes (Hospitalization, Other)
  Sender: FDA-Public Use
  Company Number: PHHY2017AU188729

PATIENT
  Age: 58 Year
  Sex: Male

DRUGS (9)
  1. QUETIAPINE. [Suspect]
     Active Substance: QUETIAPINE
     Indication: PRODUCT USED FOR UNKNOWN INDICATION
     Route: 065
  2. RISPERIDONE. [Suspect]
     Active Substance: RISPERIDONE
     Dosage: 200 MG, NOCTE
     Route: 065
  3. CLOZARIL [Suspect]
     Active Substance: CLOZAPINE
     Dosage: 150 MG, FOR 2-3 WEEKS
     Route: 065
  4. CLOPIXOL [Suspect]
     Active Substance: ZUCLOPENTHIXOL ACETATE
     Indication: PRODUCT USED FOR UNKNOWN INDICATION
     Dosage: 400 MG, FORTNIGHTLY
     Route: 065
  5. SOLIAN [Concomitant]
     Active Substance: AMISULPRIDE
     Indication: PRODUCT USED FOR UNKNOWN INDICATION
     Route: 065
  6. ABILIFY [Concomitant]
     Active Substance: ARIPIPRAZOLE
     Indication: PRODUCT USED FOR UNKNOWN INDICATION
     Route: 065
  7. CLOZARIL [Suspect]
     Active Substance: CLOZAPINE
     Indication: PRODUCT USED FOR UNKNOWN INDICATION
     Dosage: UNK
     Route: 065
  8. OLANZAPINE. [Suspect]
     Active Substance: OLANZAPINE
     Indication: PRODUCT USED FOR UNKNOWN INDICATION
     Route: 065
  9. RISPERIDONE. [Suspect]
     Active Substance: RISPERIDONE
     Indication: PRODUCT USED FOR UNKNOWN INDICATION
     Dosage: 200 MG, IR MANE
     Route: 065

REACTIONS (36)
  - Escherichia infection [Unknown]
  - Hypertension [Unknown]
  - Cyclothymic disorder [Unknown]
  - Delusion [Unknown]
  - Arrhythmia [Unknown]
  - Supraventricular tachycardia [Not Recovered/Not Resolved]
  - Muscle rigidity [Unknown]
  - Blood alkaline phosphatase increased [Unknown]
  - Blunted affect [Unknown]
  - Heart rate increased [Unknown]
  - Mitral valve incompetence [Unknown]
  - Tricuspid valve incompetence [Unknown]
  - Platelet count decreased [Recovered/Resolved]
  - High density lipoprotein decreased [Unknown]
  - Schizophrenia [Unknown]
  - Hallucination, auditory [Unknown]
  - Grief reaction [Not Recovered/Not Resolved]
  - Abnormal behaviour [Unknown]
  - Blood cholesterol decreased [Unknown]
  - Blood triglycerides increased [Unknown]
  - Lymphocyte count decreased [Recovered/Resolved]
  - Condition aggravated [Unknown]
  - Extrapyramidal disorder [Unknown]
  - Memory impairment [Unknown]
  - Renal disorder [Unknown]
  - Eosinophil count increased [Unknown]
  - Mental disorder [Unknown]
  - Cerebral atrophy [Unknown]
  - Left ventricular hypertrophy [Unknown]
  - Parkinsonian rest tremor [Unknown]
  - Slow speech [Unknown]
  - Anxiety [Not Recovered/Not Resolved]
  - Aggression [Not Recovered/Not Resolved]
  - Agitation [Not Recovered/Not Resolved]
  - Conduction disorder [Unknown]
  - Total cholesterol/HDL ratio increased [Unknown]

NARRATIVE: CASE EVENT DATE: 20110907
